FAERS Safety Report 5377327-2 (Version None)
Quarter: 2007Q3

REPORT INFORMATION
  Report Type: 
  Country: None (occurrence: None)
  Receive Date: 20070703
  Receipt Date: 20070621
  Transmission Date: 20080115
  Serious: Yes (Other)
  Sender: FDA-Public Use
  Company Number: US-SANOFI-SYNTHELABO-A03200704156

PATIENT
  Age: 80 Year
  Sex: Male

DRUGS (3)
  1. MULTIVITAMIN [Concomitant]
     Dosage: UNK
     Route: 065
  2. GLUCOPHAGE [Concomitant]
     Dosage: UNK
     Route: 048
  3. AMBIEN [Suspect]
     Indication: INSOMNIA
     Dosage: 5 MG HS (CUT TABLETS IN HALF)
     Route: 048
     Dates: start: 20060201, end: 20070612

REACTIONS (1)
  - DEAFNESS [None]
